FAERS Safety Report 4737052-5 (Version None)
Quarter: 2005Q3

REPORT INFORMATION
  Report Type: 
  Country: None (occurrence: None)
  Receive Date: 20050804
  Receipt Date: 20050728
  Transmission Date: 20060218
  Serious: Yes (Other)
  Sender: FDA-Public Use
  Company Number: GBWYE865928JUL05

PATIENT
  Age: 24 Year
  Sex: Female

DRUGS (6)
  1. TAZOCIN            (PIPERACILLIN/TAZOBACTAM, INJECTION) [Suspect]
     Indication: NEUTROPENIC SEPSIS
     Dosage: 4.5G INTRAVENOUS
     Route: 042
     Dates: start: 20050714, end: 20050715
  2. CYCLIZINE (CYCLIZINE) [Concomitant]
  3. BECLOMETHASONE DIPROPIONATE [Concomitant]
  4. ALBUTEROL SULFATE HFA [Concomitant]
  5. ACETAMINOPHEN [Concomitant]
  6. LANSOPRAZOLE [Concomitant]

REACTIONS (2)
  - HYPOAESTHESIA ORAL [None]
  - PARAESTHESIA [None]
